FAERS Safety Report 23528197 (Version 1)
Quarter: 2024Q1

REPORT INFORMATION
  Report Type: Spontaneous
  Country: US (occurrence: US)
  Receive Date: 20240215
  Receipt Date: 20240215
  Transmission Date: 20240410
  Serious: Yes (Other)
  Sender: FDA-Public Use
  Company Number: US-DRL-USA-LIT/USA/24/0002525

PATIENT
  Age: 68 Year
  Sex: Female

DRUGS (7)
  1. MELOXICAM [Suspect]
     Active Substance: MELOXICAM
  2. NITROFURANTOIN [Suspect]
     Active Substance: NITROFURANTOIN
  3. ALENDRONIC ACID [Suspect]
     Active Substance: ALENDRONIC ACID
  4. CLOPIDOGREL [Concomitant]
     Active Substance: CLOPIDOGREL BISULFATE
  5. VERAPAMIL [Concomitant]
     Active Substance: VERAPAMIL HYDROCHLORIDE
  6. SUMATRIPTAN [Concomitant]
     Active Substance: SUMATRIPTAN
  7. ESTROGENS [Concomitant]
     Active Substance: ESTROGENS

REACTIONS (1)
  - Drug-induced liver injury [Recovered/Resolved]
